FAERS Safety Report 9278131 (Version 4)
Quarter: 2014Q1

REPORT INFORMATION
  Report Type: Spontaneous
  Country: US (occurrence: US)
  Receive Date: 20130508
  Receipt Date: 20140108
  Transmission Date: 20141002
  Serious: Yes (Death, Hospitalization)
  Sender: FDA-Public Use
  Company Number: US-ASTELLAS-2013US004745

PATIENT
  Sex: Female

DRUGS (1)
  1. PROGRAF [Suspect]
     Indication: HEART TRANSPLANT
     Dosage: 1.5 MG, BID
     Route: 048

REACTIONS (5)
  - Drug ineffective [Unknown]
  - Vasoplegia syndrome [Fatal]
  - Multi-organ failure [Fatal]
  - Heart transplant rejection [Fatal]
  - Septic shock [Fatal]
